FAERS Safety Report 6320347-1 (Version None)
Quarter: 2009Q3

REPORT INFORMATION
  Report Type: 
  Country: None (occurrence: None)
  Receive Date: 20090822
  Receipt Date: 20081031
  Transmission Date: 20100115
  Serious: No
  Sender: FDA-Public Use
  Company Number: US-ABBOTT-08P-163-0485063-00

PATIENT

DRUGS (11)
  1. NIASPAN [Suspect]
     Indication: BLOOD TRIGLYCERIDES INCREASED
     Dates: start: 20081017
  2. NIASPAN [Suspect]
     Indication: HIGH DENSITY LIPOPROTEIN DECREASED
  3. NIASPAN [Suspect]
     Indication: LOW DENSITY LIPOPROTEIN INCREASED
  4. TRICOR [Suspect]
     Indication: BLOOD TRIGLYCERIDES INCREASED
     Dosage: 145MG, DAILY
     Dates: start: 20071001
  5. TRICOR [Suspect]
     Indication: HIGH DENSITY LIPOPROTEIN DECREASED
  6. TRICOR [Suspect]
     Indication: LOW DENSITY LIPOPROTEIN INCREASED
  7. LOVAZA [Suspect]
     Indication: BLOOD TRIGLYCERIDES INCREASED
     Route: 048
     Dates: start: 20071001
  8. LOVAZA [Suspect]
     Indication: HIGH DENSITY LIPOPROTEIN DECREASED
  9. LOVAZA [Suspect]
     Indication: LOW DENSITY LIPOPROTEIN INCREASED
  10. FLUOXETINE [Concomitant]
     Indication: DRUG USE FOR UNKNOWN INDICATION
  11. ASPIRIN [Concomitant]
     Indication: DRUG USE FOR UNKNOWN INDICATION

REACTIONS (5)
  - BURNING SENSATION [None]
  - FLUSHING [None]
  - HEART RATE INCREASED [None]
  - MYALGIA [None]
  - PRURITUS [None]
